FAERS Safety Report 15783569 (Version 2)
Quarter: 2019Q1

REPORT INFORMATION
  Report Type: Spontaneous
  Country: FR (occurrence: FR)
  Receive Date: 20190102
  Receipt Date: 20190204
  Transmission Date: 20190417
  Serious: Yes (Other)
  Sender: FDA-Public Use
  Company Number: FR-MYLANLABS-2018M1097153

PATIENT
  Age: 82 Year
  Sex: Female
  Weight: 55 kg

DRUGS (8)
  1. FORMOTEROL [Suspect]
     Active Substance: FORMOTEROL
     Indication: DYSPNOEA
     Dosage: 24 MICROGRAM, QD (24 UG, QD)
     Route: 055
  2. LORAZEPAM. [Concomitant]
     Active Substance: LORAZEPAM
     Indication: PRODUCT USED FOR UNKNOWN INDICATION
     Dosage: UNK
     Route: 065
  3. VENTOLINE                          /00139501/ [Concomitant]
     Active Substance: ALBUTEROL
     Indication: PRODUCT USED FOR UNKNOWN INDICATION
     Dosage: UNK
     Route: 065
  4. FORADIL [Suspect]
     Active Substance: FORMOTEROL FUMARATE
     Dosage: 2 DOSAGE FORM, QD (2 DF, QD)
     Route: 055
     Dates: start: 20120405
  5. BECLOJET [Concomitant]
     Active Substance: BECLOMETHASONE DIPROPIONATE
     Indication: PRODUCT USED FOR UNKNOWN INDICATION
     Dosage: 120 MICROGRAM (120 UG, UNK)
     Route: 065
  6. PERINDOPRIL [Concomitant]
     Active Substance: PERINDOPRIL
     Indication: PRODUCT USED FOR UNKNOWN INDICATION
     Dosage: UNK
     Route: 065
  7. FORADIL [Suspect]
     Active Substance: FORMOTEROL FUMARATE
     Indication: DYSPNOEA
     Dosage: 2 DOSAGE FORM, QD (2 DF, QD)
     Route: 055
  8. FORMOTEROL [Suspect]
     Active Substance: FORMOTEROL
     Dosage: 24 MICROGRAM, QD
     Route: 055
     Dates: start: 20120405

REACTIONS (5)
  - Choking sensation [Not Recovered/Not Resolved]
  - Discomfort [Unknown]
  - Foreign body aspiration [Unknown]
  - Device malfunction [Unknown]
  - Cough [Not Recovered/Not Resolved]

NARRATIVE: CASE EVENT DATE: 201709
